FAERS Safety Report 25282951 (Version 2)
Quarter: 2025Q3

REPORT INFORMATION
  Report Type: Report from Study
  Country: US (occurrence: US)
  Receive Date: 20250508
  Receipt Date: 20250922
  Transmission Date: 20251021
  Serious: Yes (Hospitalization, Other)
  Sender: SUNOVION
  Company Number: US-SMPA-2025SPA005439

PATIENT
  Age: 70 Year
  Sex: Male

DRUGS (2)
  1. ORGOVYX [Suspect]
     Active Substance: RELUGOLIX
     Indication: Prostate cancer
     Route: 048
  2. ORGOVYX [Suspect]
     Active Substance: RELUGOLIX
     Dosage: 120 MG, QD
     Route: 048
     Dates: start: 20250110

REACTIONS (9)
  - Atrial fibrillation [Unknown]
  - Arrhythmia [Unknown]
  - Hypotension [Unknown]
  - Cardiac disorder [Unknown]
  - Heart rate increased [Unknown]
  - Orthostatic hypotension [Unknown]
  - Dyspnoea [Unknown]
  - Glycosylated haemoglobin increased [Unknown]
  - Fatigue [Unknown]
